FAERS Safety Report 24283224 (Version 5)
Quarter: 2025Q2

REPORT INFORMATION
  Report Type: Report from Study
  Country: JP (occurrence: JP)
  Receive Date: 20240904
  Receipt Date: 20250425
  Transmission Date: 20250717
  Serious: Yes (Hospitalization)
  Sender: EISAI
  Company Number: JP-Eisai-202406742_LEQ_P_1

PATIENT
  Age: 76 Year
  Sex: Female
  Weight: 67 kg

DRUGS (3)
  1. LEQEMBI [Suspect]
     Active Substance: LECANEMAB-IRMB
     Indication: Dementia Alzheimer^s type
     Dates: start: 20240415, end: 20240805
  2. LEQEMBI [Suspect]
     Active Substance: LECANEMAB-IRMB
     Dates: start: 20240925
  3. LOXOPROFEN SODIUM [Concomitant]
     Active Substance: LOXOPROFEN SODIUM

REACTIONS (2)
  - Haemorrhagic hepatic cyst [Unknown]
  - Decreased appetite [Unknown]

NARRATIVE: CASE EVENT DATE: 20240101
